FAERS Safety Report 12313273 (Version 8)
Quarter: 2018Q2

REPORT INFORMATION
  Report Type: Spontaneous
  Country: US (occurrence: US)
  Receive Date: 20160428
  Receipt Date: 20180515
  Transmission Date: 20180711
  Serious: Yes (Other)
  Sender: FDA-Public Use
  Company Number: US-PFIZER INC-2016217197

PATIENT
  Age: 81 Year
  Sex: Female
  Weight: 69.4 kg

DRUGS (6)
  1. PREDNISONE. [Suspect]
     Active Substance: PREDNISONE
     Dosage: 5 MG, UNK
  2. VITAMIN D [Concomitant]
     Active Substance: CHOLECALCIFEROL
     Dosage: UNK
  3. XELJANZ [Interacting]
     Active Substance: TOFACITINIB CITRATE
     Dosage: 5 MG, 2X/DAY
     Route: 048
     Dates: start: 2016
  4. XELJANZ [Suspect]
     Active Substance: TOFACITINIB CITRATE
     Indication: RHEUMATOID ARTHRITIS
     Dosage: 5 MG, UNK
  5. PREDNISONE. [Suspect]
     Active Substance: PREDNISONE
     Dosage: UNK (TWO AND A HALF MG )
  6. SIMVASTATIN. [Interacting]
     Active Substance: SIMVASTATIN
     Indication: BLOOD CHOLESTEROL INCREASED
     Dosage: 10 MG, DAILY
     Dates: end: 20170830

REACTIONS (17)
  - Blood cholesterol increased [Not Recovered/Not Resolved]
  - Abnormal faeces [Unknown]
  - Drug interaction [Unknown]
  - Shock [Unknown]
  - Abdominal distension [Unknown]
  - Abdominal pain upper [Unknown]
  - Low density lipoprotein increased [Unknown]
  - Vein rupture [Unknown]
  - Rash [Unknown]
  - Urinary tract infection [Unknown]
  - Tinea pedis [Unknown]
  - Nausea [Unknown]
  - Frequent bowel movements [Unknown]
  - Upper respiratory tract infection [Unknown]
  - Gastric disorder [Unknown]
  - Flatulence [Unknown]
  - Cough [Unknown]

NARRATIVE: CASE EVENT DATE: 2017
